FAERS Safety Report 6551872-6 (Version None)
Quarter: 2009Q4

REPORT INFORMATION
  Report Type: 
  Country: None (occurrence: None)
  Receive Date: 20091215
  Receipt Date: 20081210
  Transmission Date: 20100525
  Serious: Yes (Other)
  Sender: FDA-Public Use
  Company Number: FEI2008-2300

PATIENT
  Age: 34 Year
  Sex: Female
  Weight: 58.0604 kg

DRUGS (1)
  1. INTRAUTERINE COPPER CONTRACEPTIVE [Suspect]
     Indication: CONTRACEPTION
     Dosage: INTRA-UTERINE
     Route: 015
     Dates: start: 20081203, end: 20081203

REACTIONS (3)
  - HYPERHIDROSIS [None]
  - NAUSEA [None]
  - SYNCOPE [None]
